FAERS Safety Report 12337491 (Version 2)
Quarter: 2016Q2

REPORT INFORMATION
  Report Type: Spontaneous
  Country: CH (occurrence: CH)
  Receive Date: 20160505
  Receipt Date: 20160620
  Transmission Date: 20160815
  Serious: Yes (Hospitalization)
  Sender: FDA-Public Use
  Company Number: CH-LPDUSPRD-20160380

PATIENT
  Age: 65 Year
  Sex: Male

DRUGS (18)
  1. TARGIN 20 [Concomitant]
     Dosage: 2 IN 1 D
     Route: 065
  2. SELIPRAN [Concomitant]
     Active Substance: PRAVASTATIN SODIUM
     Dosage: 40 MG
     Route: 065
  3. APROVEL [Concomitant]
     Active Substance: IRBESARTAN
     Dosage: 300 UNKNOWN
     Route: 065
  4. ONBREZ [Concomitant]
     Active Substance: INDACATEROL
     Dosage: 1 IN 1 D
     Route: 065
  5. FERINJECT [Suspect]
     Active Substance: FERRIC CARBOXYMALTOSE
     Dosage: 1000 MG
     Route: 065
     Dates: start: 2009
  6. PNEUMOVAX 23 [Concomitant]
     Active Substance: PNEUMOCOCCAL VACCINE, POLYVALENT 23
     Dosage: DOSE UNKNOWN
     Route: 065
     Dates: start: 20121009
  7. NOVALGIN [Concomitant]
     Active Substance: METAMIZOLE SODIUM
     Dosage: DOSE UNKNOWN
     Route: 065
  8. SAROTEN [Concomitant]
     Active Substance: AMITRIPTYLINE
     Dosage: DOSE UNKNOWN
     Route: 065
  9. PROLIA [Concomitant]
     Active Substance: DENOSUMAB
     Dosage: 1 DOSAGE FORM IN 3 M
     Route: 058
  10. CO-APPROVEL FORTE [Concomitant]
     Dosage: 1 IN 1 D
     Route: 065
  11. NORMISON [Concomitant]
     Active Substance: TEMAZEPAM
     Dosage: DOSE UNKNOWN
     Route: 065
  12. DHEA 50 [Concomitant]
     Dosage: DOSE UNKNOWN, 1 IN 1 D
     Route: 065
  13. SERETIDE [Concomitant]
     Active Substance: FLUTICASONE PROPIONATE\SALMETEROL XINAFOATE
     Dosage: DOSE UNKNOWN
     Route: 065
  14. VITAMIN D [Concomitant]
     Active Substance: CHOLECALCIFEROL
     Dosage: DOSE UNKNOWN
     Route: 065
  15. FLUMIMICIL [Concomitant]
     Dosage: DOSE UNKNOWN
     Route: 065
  16. CALCIMAGON D3 FORTE [Concomitant]
     Dosage: 1 DOSAGE FORM, 1 IN 1 D
     Route: 065
  17. DAFALGAN [Concomitant]
     Active Substance: ACETAMINOPHEN
     Dosage: MAXIMUM THREE TIMES A DAY
     Route: 065
  18. DEANXIT [Concomitant]
     Active Substance: FLUPENTIXOL DIHYDROCHLORIDE\MELITRACEN HYDROCHLORIDE
     Dosage: 1 DOSAGE FORM (1 IN 1 D)
     Route: 065

REACTIONS (1)
  - Osteomalacia [Not Recovered/Not Resolved]

NARRATIVE: CASE EVENT DATE: 2016
